FAERS Safety Report 11766771 (Version 1)
Quarter: 2015Q4

REPORT INFORMATION
  Report Type: Spontaneous
  Country: US (occurrence: None)
  Receive Date: 20151120
  Receipt Date: 20151120
  Transmission Date: 20160304
  Serious: Yes (Death)
  Sender: FDA-Public Use
  Company Number: None

PATIENT
  Age: 69 Year
  Sex: Male
  Weight: 45.9 kg

DRUGS (1)
  1. HEPARIN [Suspect]
     Active Substance: HEPARIN SODIUM
     Indication: DEEP VEIN THROMBOSIS
     Dosage: 1100 UNITS
     Route: 042
     Dates: start: 20150928, end: 20151110

REACTIONS (14)
  - Cardio-respiratory arrest [None]
  - Clostridial infection [None]
  - Pneumonia [None]
  - Respiratory failure [None]
  - Pulmonary haemorrhage [None]
  - Atrial fibrillation [None]
  - Pulseless electrical activity [None]
  - Activated partial thromboplastin time abnormal [None]
  - Haemoglobin decreased [None]
  - Feeding tube complication [None]
  - Haemorrhage [None]
  - Pulmonary oedema [None]
  - Cardiac failure [None]
  - Metabolic acidosis [None]

NARRATIVE: CASE EVENT DATE: 20151110
